FAERS Safety Report 7249740-X (Version None)
Quarter: 2011Q1

REPORT INFORMATION
  Report Type: 
  Country: None (occurrence: None)
  Receive Date: 20110128
  Receipt Date: 20091207
  Transmission Date: 20110831
  Serious: No
  Sender: FDA-Public Use
  Company Number: A0833888A

PATIENT
  Sex: Female

DRUGS (2)
  1. BUPROPION HYDROCHLORIDE [Suspect]
     Indication: DEPRESSION
     Dosage: 100MG FOUR TIMES PER DAY
     Route: 048
     Dates: start: 20050101
  2. SYNTHROID [Concomitant]

REACTIONS (1)
  - DRUG INEFFECTIVE [None]
